FAERS Safety Report 14187890 (Version 2)
Quarter: 2017Q4

REPORT INFORMATION
  Report Type: Spontaneous
  Country: JP (occurrence: JP)
  Receive Date: 20171114
  Receipt Date: 20171120
  Transmission Date: 20180321
  Serious: Yes (Hospitalization, Other)
  Sender: FDA-Public Use
  Company Number: JP-PFIZER INC-2017481545

PATIENT
  Age: 55 Year
  Sex: Female

DRUGS (7)
  1. CYCLOPHOSPHAMIDE. [Suspect]
     Active Substance: CYCLOPHOSPHAMIDE
     Indication: BREAST CANCER STAGE IV
     Dosage: 600 MG/M2, CYCLIC (EVERY 3 WEEKS (DAY 1))
     Route: 042
  2. DEXAMETHASONE. [Concomitant]
     Active Substance: DEXAMETHASONE
     Dosage: 8 MG, UNK (DAY 2-4)
     Route: 048
  3. DEXAMETHASONE. [Concomitant]
     Active Substance: DEXAMETHASONE
     Dosage: 13.2 MG, UNK (DAY 1)
     Route: 042
  4. APREPITANT. [Concomitant]
     Active Substance: APREPITANT
     Dosage: 85 MG, UNK (DAY 2-3)
     Route: 048
  5. PALONOSETRON. [Concomitant]
     Active Substance: PALONOSETRON HYDROCHLORIDE
     Dosage: 0.75 MG, UNK (DAY 1)
     Route: 042
  6. EPIRUBICIN HCL [Suspect]
     Active Substance: EPIRUBICIN HYDROCHLORIDE
     Indication: BREAST CANCER STAGE IV
     Dosage: 90 MG/M2, CYCLIC (EVERY 3 WEEKS (DAY 1))
     Route: 042
  7. APREPITANT. [Concomitant]
     Active Substance: APREPITANT
     Dosage: 125 MG, UNK (DAY 1)
     Route: 048

REACTIONS (1)
  - Aortitis [Recovered/Resolved]
